FAERS Safety Report 22146018 (Version 2)
Quarter: 2023Q2

REPORT INFORMATION
  Report Type: Spontaneous
  Country: MX (occurrence: MX)
  Receive Date: 20230328
  Receipt Date: 20230410
  Transmission Date: 20230721
  Serious: Yes (Other)
  Sender: FDA-Public Use
  Company Number: MX-JNJFOC-20230345122

PATIENT

DRUGS (1)
  1. SPRAVATO [Suspect]
     Active Substance: ESKETAMINE
     Indication: Product used for unknown indication
     Dates: start: 2016

REACTIONS (18)
  - Dependence [Unknown]
  - Syncope [Unknown]
  - Hallucination [Unknown]
  - Suicidal ideation [Unknown]
  - Withdrawal syndrome [Unknown]
  - Hypotension [Unknown]
  - Chills [Unknown]
  - Insomnia [Unknown]
  - Myalgia [Unknown]
  - Hyperhidrosis [Unknown]
  - Feeling abnormal [Unknown]
  - Tremor [Unknown]
  - Confusional state [Unknown]
  - Nausea [Unknown]
  - Vomiting [Unknown]
  - Headache [Unknown]
  - Dizziness [Unknown]
  - Anxiety [Unknown]
